FAERS Safety Report 15698982 (Version 1)
Quarter: 2018Q4

REPORT INFORMATION
  Report Type: Spontaneous
  Country: US (occurrence: US)
  Receive Date: 20181207
  Receipt Date: 20181207
  Transmission Date: 20190205
  Serious: Yes (Other)
  Sender: FDA-Public Use
  Company Number: None

PATIENT
  Age: 39 Year
  Sex: Female
  Weight: 77.85 kg

DRUGS (3)
  1. TRINTELLIX [Suspect]
     Active Substance: VORTIOXETINE HYDROBROMIDE
     Indication: BIPOLAR II DISORDER
     Dosage: ?          QUANTITY:1 TABLET(S);?
     Route: 048
  2. TRINTELLIX 20MG DAILY [Concomitant]
  3. AMOHETAMINE SALTS 20 MG - 1-3X DAILY [Concomitant]

REACTIONS (5)
  - Ocular hyperaemia [None]
  - Visual impairment [None]
  - Emotional distress [None]
  - Discomfort [None]
  - Eye inflammation [None]

NARRATIVE: CASE EVENT DATE: 20180110
